FAERS Safety Report 5477087-0 (Version None)
Quarter: 2007Q4

REPORT INFORMATION
  Report Type: 
  Country: None (occurrence: None)
  Receive Date: 20071003
  Receipt Date: 20071003
  Transmission Date: 20080405
  Serious: No
  Sender: FDA-Public Use
  Company Number: None

PATIENT
  Age: 62 Year
  Sex: Female
  Weight: 62.5964 kg

DRUGS (1)
  1. ADVAIR DISKUS 250/50 [Suspect]
     Indication: ASTHMA
     Dosage: 1 DOSE  TWICE DAILY  INHAL
     Route: 055
     Dates: start: 20070912, end: 20070917

REACTIONS (3)
  - CHEST DISCOMFORT [None]
  - DYSPHONIA [None]
  - PHARYNGOLARYNGEAL PAIN [None]
